FAERS Safety Report 5243170-8 (Version None)
Quarter: 2007Q1

REPORT INFORMATION
  Report Type: 
  Country: None (occurrence: None)
  Receive Date: 20070221
  Receipt Date: 20070212
  Transmission Date: 20070707
  Serious: Yes (Other)
  Sender: FDA-Public Use
  Company Number: US-PFIZER INC-2007011768

PATIENT
  Age: 36 Year
  Sex: Female

DRUGS (1)
  1. XANAX [Suspect]

REACTIONS (1)
  - SUICIDE ATTEMPT [None]
